FAERS Safety Report 12979944 (Version 1)
Quarter: 2016Q4

REPORT INFORMATION
  Report Type: Report from Study
  Country: MX (occurrence: MX)
  Receive Date: 20161128
  Receipt Date: 20161128
  Transmission Date: 20170207
  Serious: Yes (Other)
  Sender: FDA-Public Use
  Company Number: MX-BAYER-2016-220704

PATIENT
  Age: 56 Year
  Sex: Male
  Weight: 76 kg

DRUGS (1)
  1. NEXAVAR [Suspect]
     Active Substance: SORAFENIB
     Indication: HEPATOCELLULAR CARCINOMA
     Dosage: 200 MG, BID
     Dates: start: 20161027, end: 20161115

REACTIONS (9)
  - Abasia [Unknown]
  - Erythema [Not Recovered/Not Resolved]
  - Faeces discoloured [Not Recovered/Not Resolved]
  - Blister [Not Recovered/Not Resolved]
  - Pain of skin [Not Recovered/Not Resolved]
  - Weight decreased [Unknown]
  - Skin exfoliation [Not Recovered/Not Resolved]
  - Sciatica [Not Recovered/Not Resolved]
  - Musculoskeletal pain [Unknown]

NARRATIVE: CASE EVENT DATE: 20161106
